FAERS Safety Report 4667760-6 (Version None)
Quarter: 2005Q2

REPORT INFORMATION
  Report Type: 
  Country: None (occurrence: None)
  Receive Date: 20050520
  Receipt Date: 20050517
  Transmission Date: 20051028
  Serious: Yes (Other)
  Sender: FDA-Public Use
  Company Number: US-GLAXOSMITHKLINE-A0558962A

PATIENT
  Sex: Male

DRUGS (6)
  1. CARVEDILOL [Suspect]
     Indication: CARDIAC FAILURE CONGESTIVE
     Route: 048
     Dates: start: 20030101
  2. MONOPRIL [Concomitant]
  3. LASIX [Concomitant]
  4. PRAVACHOL [Concomitant]
  5. VICODIN [Concomitant]
  6. ASPIRIN [Concomitant]

REACTIONS (4)
  - ABNORMAL DREAMS [None]
  - FATIGUE [None]
  - HALLUCINATION [None]
  - HYPERSOMNIA [None]
